FAERS Safety Report 14420169 (Version 1)
Quarter: 2018Q1

REPORT INFORMATION
  Report Type: Spontaneous
  Country: US (occurrence: US)
  Receive Date: 20180122
  Receipt Date: 20180122
  Transmission Date: 20180509
  Serious: Yes (Hospitalization, Other)
  Sender: FDA-Public Use
  Company Number: US-MYLANLABS-2018M1004450

PATIENT
  Age: 26 Year
  Sex: Male
  Weight: 86 kg

DRUGS (2)
  1. EPIPEN [Suspect]
     Active Substance: EPINEPHRINE
  2. EPIPEN [Suspect]
     Active Substance: EPINEPHRINE
     Indication: FOOD ALLERGY

REACTIONS (10)
  - Device failure [Not Recovered/Not Resolved]
  - Swelling face [Recovering/Resolving]
  - Anaphylactic shock [Recovered/Resolved]
  - Feeling abnormal [Recovering/Resolving]
  - Expired product administered [Unknown]
  - Injection site haemorrhage [Recovering/Resolving]
  - Erythema [Recovering/Resolving]
  - Injury associated with device [Not Recovered/Not Resolved]
  - Skin injury [Recovering/Resolving]
  - Pain in extremity [Recovering/Resolving]

NARRATIVE: CASE EVENT DATE: 20180114
